FAERS Safety Report 5045760-4 (Version None)
Quarter: 2006Q2

REPORT INFORMATION
  Report Type: 
  Country: None (occurrence: None)
  Receive Date: 20060601
  Receipt Date: 20060424
  Transmission Date: 20061013
  Serious: No
  Sender: FDA-Public Use
  Company Number: 2006-BP-01068BP(1)

PATIENT
  Age: 77 Year
  Sex: Female

DRUGS (6)
  1. SPIRIVA [Suspect]
     Indication: CHRONIC OBSTRUCTIVE PULMONARY DISEASE
     Dosage: 18 MCG (18 MCG, 1 IN 1 D), IH
     Route: 055
  2. ADVAIR ^SERETIDE /01420901/ ) [Concomitant]
  3. ALBUTEROL SPIROS [Concomitant]
  4. ENALAPRIL MALEATE [Concomitant]
  5. FIORINAL [Concomitant]
  6. METHOCARBAMOL [Concomitant]

REACTIONS (1)
  - CLUMSINESS [None]
